FAERS Safety Report 6313474-6 (Version None)
Quarter: 2009Q3

REPORT INFORMATION
  Report Type: 
  Country: None (occurrence: None)
  Receive Date: 20090813
  Receipt Date: 20090813
  Transmission Date: 20100115
  Serious: Yes (Other)
  Sender: FDA-Public Use
  Company Number: None

PATIENT
  Age: 55 Year
  Sex: Female
  Weight: 113.8529 kg

DRUGS (1)
  1. LOVENOX [Suspect]
     Indication: DEEP VEIN THROMBOSIS
     Dosage: 100 MG EVERY 12 HOURS SQ
     Route: 058
     Dates: start: 20090810, end: 20090816

REACTIONS (2)
  - DRUG EFFECT DECREASED [None]
  - DRUG HYPERSENSITIVITY [None]
